FAERS Safety Report 8857720 (Version 3)
Quarter: 2013Q2

REPORT INFORMATION
  Report Type: Spontaneous
  Country: US (occurrence: US)
  Receive Date: 20121024
  Receipt Date: 20130429
  Transmission Date: 20140414
  Serious: Yes (Hospitalization)
  Sender: FDA-Public Use
  Company Number: US-ALEXION-A201201957

PATIENT
  Age: 28 Year
  Sex: Male
  Weight: 58.6 kg

DRUGS (34)
  1. SOLIRIS 300MG [Suspect]
     Indication: TRANSPLANT REJECTION
     Dosage: 1200 MG, SINGLE
     Route: 042
     Dates: start: 20120513, end: 20120513
  2. SOLIRIS 300MG [Suspect]
     Dosage: 600 MG, UNK
     Dates: start: 20120514, end: 20120524
  3. SOLIRIS 300MG [Suspect]
     Dosage: 900 MG, UNK
     Dates: start: 20120527, end: 20120610
  4. SOLIRIS 300MG [Suspect]
     Dosage: 1200 MG, UNK
     Route: 042
     Dates: start: 20120618, end: 20120702
  5. CIPRO [Concomitant]
     Indication: PROPHYLAXIS
     Dosage: UNK
     Dates: end: 201208
  6. WARFARIN [Concomitant]
     Dosage: 12.5 MG, M/T/TS
     Route: 048
  7. LEVETIRACETAM [Concomitant]
     Dosage: 250 MG, M/W/F
     Route: 048
  8. LEVETIRACETAM [Concomitant]
     Dosage: 500 MG, QD
     Route: 048
  9. GABAPENTIN [Concomitant]
     Dosage: 100 MG, QD HS
     Route: 048
  10. SUMATRIPTAN [Concomitant]
     Indication: MIGRAINE
     Dosage: 50 MG, BID PRN
     Route: 048
  11. SUMATRIPTAN [Concomitant]
     Indication: HEADACHE
  12. VITAMIN B COMPLEX WITH C [Concomitant]
     Dosage: 1 DF, QD
     Route: 048
  13. LORATADINE [Concomitant]
     Dosage: 10 MG, QD
     Route: 048
  14. OXYBUTYNIN [Concomitant]
     Dosage: 15 MG, QD
     Route: 048
  15. ATOVAQUONE SUSP [Concomitant]
     Dosage: 1500 MG, QD
     Route: 048
  16. FAMOTIDINE [Concomitant]
     Dosage: 20 MG, UNK
     Route: 048
  17. PREDNISONE [Concomitant]
     Dosage: 20 MG, QD
     Route: 048
  18. MYCOPHENOLATE MOFETIL [Concomitant]
     Dosage: 1000 MG, BID
     Route: 048
  19. OXYCONTIN [Concomitant]
     Dosage: 40 MG, BID
     Route: 048
  20. PSEUDOEPHEDRINE HYDROCHLORIDE [Concomitant]
     Dosage: 60 MG, BID
     Route: 048
  21. PRIMIDONE [Concomitant]
     Dosage: 100 MG, QD
     Route: 048
  22. PRIMIDONE [Concomitant]
     Dosage: 150 MG, QD
     Route: 048
  23. DILAUDID [Concomitant]
     Indication: PAIN
     Dosage: 8 MG, Q6H PRN
     Route: 048
  24. LOPERAMIDE [Concomitant]
     Indication: DIARRHOEA
     Dosage: 2 MG, Q 4 HRS
     Route: 048
  25. CALCIUM CARBONATE [Concomitant]
     Dosage: 650 MG, QD PRN
     Route: 048
  26. DIPHENHYDRAMINE [Concomitant]
     Indication: PRURITUS
     Dosage: PRN25 MG, TID
  27. SIMETHICONE [Concomitant]
     Indication: FLATULENCE
     Dosage: 80 MG, QID PRN
     Route: 048
  28. NEOSPORIN [Concomitant]
     Dosage: 1 APPLICATION, Q4H PRN
     Route: 061
  29. ARANESP [Concomitant]
     Dosage: 60 ?G, QW PRN
     Route: 058
  30. EUCERIN OMEGA [Concomitant]
     Indication: DRY SKIN
     Dosage: 1 APPLICATION, Q2H PRN
     Route: 061
  31. CETAPHIL [Concomitant]
     Dosage: 1 APPLICATION, TID
     Route: 061
  32. LOVENOX [Concomitant]
     Dosage: 40 MG, QD
     Route: 058
  33. FERROUS SULFATE [Concomitant]
     Dosage: 325 MG, QD
     Route: 048
  34. PHENERGAN [Concomitant]
     Indication: NAUSEA
     Dosage: 25 MG, QID PRN
     Route: 048

REACTIONS (25)
  - Abdominal abscess [Recovered/Resolved with Sequelae]
  - Enterococcal infection [Recovered/Resolved with Sequelae]
  - Serratia infection [Recovered/Resolved with Sequelae]
  - Pseudomonas infection [Recovered/Resolved with Sequelae]
  - Candida infection [Recovered/Resolved with Sequelae]
  - Escherichia infection [Recovered/Resolved]
  - Stenotrophomonas infection [Recovered/Resolved]
  - Clostridium difficile infection [Recovered/Resolved]
  - Adrenal insufficiency [Unknown]
  - Delusion [Unknown]
  - Serum sickness [Unknown]
  - Psychotic disorder [Unknown]
  - Hypokalaemia [Recovered/Resolved]
  - Staphylococcal bacteraemia [Recovered/Resolved]
  - Pulmonary embolism [Unknown]
  - Cardiac tamponade [Unknown]
  - Fungal infection [Recovered/Resolved]
  - Depression [Unknown]
  - Renal tubular necrosis [Recovered/Resolved]
  - Hypotension [Recovered/Resolved]
  - Joint dislocation [Unknown]
  - Genital disorder male [Recovering/Resolving]
  - Fall [Recovered/Resolved with Sequelae]
  - Vision blurred [Unknown]
  - Oedema peripheral [Unknown]
